FAERS Safety Report 5198724-4 (Version None)
Quarter: 2007Q1

REPORT INFORMATION
  Report Type: 
  Country: None (occurrence: None)
  Receive Date: 20070104
  Receipt Date: 20061228
  Transmission Date: 20070707
  Serious: Yes (Hospitalization)
  Sender: FDA-Public Use
  Company Number: US-GLAXOSMITHKLINE-A0632872A

PATIENT
  Age: 40 Year
  Sex: Female

DRUGS (2)
  1. LAMICTAL [Suspect]
     Indication: BIPOLAR DISORDER
     Dosage: 225MG UNKNOWN
     Route: 048
     Dates: start: 20050101, end: 20061201
  2. ABILIFY [Concomitant]

REACTIONS (2)
  - CHOLANGITIS [None]
  - PANCREATITIS [None]
